FAERS Safety Report 4994979-7 (Version None)
Quarter: 2006Q2

REPORT INFORMATION
  Report Type: 
  Country: None (occurrence: None)
  Receive Date: 20060503
  Receipt Date: 20060424
  Transmission Date: 20061013
  Serious: Yes (Hospitalization)
  Sender: FDA-Public Use
  Company Number: HQWYE998426APR06

PATIENT
  Age: 29 Year
  Sex: Male

DRUGS (10)
  1. RAPAMUNE [Suspect]
     Indication: PROPHYLAXIS AGAINST TRANSPLANT REJECTION
     Dosage: 4 MG 1X PER 1 DAY ORAL
     Route: 048
     Dates: start: 20060226
  2. PREDNISONE TAB [Concomitant]
  3. MYCOPHENOLATE MOFETIL [Concomitant]
  4. CARDEGIC (ACETYLSALICYLATE LYSINE) [Concomitant]
  5. AMLODIPINE BESYLATE [Concomitant]
  6. BACTRIM [Concomitant]
  7. OMEPRAZOLE [Concomitant]
  8. ZELITREX (VALACICLOVIR) [Concomitant]
  9. DEPAKENE [Concomitant]
  10. LASIX [Concomitant]

REACTIONS (2)
  - CARDIAC FAILURE [None]
  - THROMBOTIC MICROANGIOPATHY [None]
